FAERS Safety Report 10390784 (Version 1)
Quarter: 2014Q3

REPORT INFORMATION
  Report Type: Spontaneous
  Country: JP (occurrence: None)
  Receive Date: 20140814
  Receipt Date: 20140814
  Transmission Date: 20150326
  Serious: Yes (Other)
  Sender: FDA-Public Use
  Company Number: 2010JP002717

PATIENT
  Age: 27 Year
  Sex: Female

DRUGS (11)
  1. EVOXAC (CEVIMELINE HYDROCHLORIDE HYDRATE) [Concomitant]
  2. ISCOTIN (ISONIAZID) [Concomitant]
  3. GASTER D (FAMOTIDINE) [Concomitant]
  4. PREDNISOLONE. [Suspect]
     Active Substance: PREDNISOLONE
     Indication: LUPUS NEPHRITIS
     Route: 048
     Dates: end: 20081109
  5. LECTISOL (DIAPHENYLSULFONE) [Concomitant]
  6. TACROLIMUS. [Suspect]
     Active Substance: TACROLIMUS
     Indication: LUPUS NEPHRITIS
     Route: 048
     Dates: start: 20080704, end: 20081120
  7. AMOBAN (ZOPICLONE) [Concomitant]
  8. TAKEPRON (LANSOPRAZOLE) [Concomitant]
     Active Substance: LANSOPRAZOLE
  9. ONEALFA [Concomitant]
     Active Substance: ALFACALCIDOL
  10. FUNGIZONE (AMPHOTERICIN B) [Concomitant]
  11. METHYCOBAL (MECOBALAMIN) [Concomitant]

REACTIONS (5)
  - Nasopharyngitis [None]
  - Ulnar nerve palsy [None]
  - Oral candidiasis [None]
  - Iron deficiency anaemia [None]
  - Insomnia [None]

NARRATIVE: CASE EVENT DATE: 20090105
